FAERS Safety Report 10862471 (Version 2)
Quarter: 2015Q1

REPORT INFORMATION
  Report Type: Spontaneous
  Country: US (occurrence: US)
  Receive Date: 20150224
  Receipt Date: 20150226
  Transmission Date: 20150721
  Serious: No
  Sender: FDA-Public Use
  Company Number: US-GILEAD-2015-0138823

PATIENT
  Age: 63 Year
  Sex: Female

DRUGS (4)
  1. VENTAVIS [Concomitant]
     Active Substance: ILOPROST
  2. ADCIRCA [Suspect]
     Active Substance: TADALAFIL
     Indication: PRODUCT USED FOR UNKNOWN INDICATION
     Dosage: 20 MG, UNK
     Route: 065
  3. LETAIRIS [Suspect]
     Active Substance: AMBRISENTAN
     Indication: PRODUCT USED FOR UNKNOWN INDICATION
     Dosage: 5 MG, QD
     Route: 065
     Dates: start: 20141006
  4. COUMADIN [Concomitant]
     Active Substance: WARFARIN SODIUM

REACTIONS (8)
  - Abdominal discomfort [Unknown]
  - Blood pressure increased [Unknown]
  - Myalgia [Unknown]
  - Vomiting [Unknown]
  - Headache [Unknown]
  - Nausea [Unknown]
  - Pain in extremity [Unknown]
  - Heart rate increased [Unknown]
